FAERS Safety Report 14393480 (Version 1)
Quarter: 2018Q1

REPORT INFORMATION
  Report Type: Spontaneous
  Country: US (occurrence: US)
  Receive Date: 20180115
  Receipt Date: 20180115
  Transmission Date: 20180509
  Serious: No
  Sender: FDA-Public Use
  Company Number: None

PATIENT
  Age: 32 Year
  Sex: Female
  Weight: 76.5 kg

DRUGS (3)
  1. FLUTICASONE PROPINATE NASAL SPRAY USP [Suspect]
     Active Substance: FLUTICASONE PROPIONATE
     Indication: INFLAMMATION
     Dosage: ?          QUANTITY:4 SPRAY(S);?
     Route: 055
  2. AMOXICILLIN CLAVULANATE PITASSIUM [Concomitant]
  3. FLUTICASONE PROPINATE NASAL SPRAY USP [Suspect]
     Active Substance: FLUTICASONE PROPIONATE
     Indication: SINUSITIS
     Dosage: ?          QUANTITY:4 SPRAY(S);?
     Route: 055

REACTIONS (5)
  - Insomnia [None]
  - Anxiety [None]
  - Heart rate increased [None]
  - Dizziness [None]
  - Heart rate abnormal [None]

NARRATIVE: CASE EVENT DATE: 20170115
